FAERS Safety Report 7921181 (Version 5)
Quarter: 2014Q1

REPORT INFORMATION
  Report Type: Spontaneous
  Country: US (occurrence: US)
  Receive Date: 20110429
  Receipt Date: 20140103
  Transmission Date: 20141002
  Serious: Yes (Hospitalization, Other)
  Sender: FDA-Public Use
  Company Number: US-ASTRAZENECA-2010SE22482

PATIENT
  Age: 51 Year
  Sex: Female
  Weight: 81.6 kg

DRUGS (15)
  1. NEXIUM [Suspect]
     Indication: GASTROOESOPHAGEAL REFLUX DISEASE
     Route: 048
  2. NEXIUM [Suspect]
     Indication: GASTROOESOPHAGEAL REFLUX DISEASE
     Route: 048
  3. LISINOPRIL HYDROCHLOROTHIAZIDE [Suspect]
     Dosage: 10/12.5 MG ONE TABLET ONCE A DAY
     Route: 048
  4. SEROQUEL [Suspect]
     Indication: BIPOLAR I DISORDER
     Route: 048
  5. PROZAC [Concomitant]
     Indication: DEPRESSION
     Route: 048
  6. PROZAC [Concomitant]
     Indication: DEPRESSION
     Route: 048
  7. METFORMIN [Concomitant]
     Indication: DIABETES MELLITUS
     Route: 048
  8. ALBUTEROL NEBULIZER [Concomitant]
     Indication: ASTHMA
     Dosage: 90 MCG/INH AEROSOL WITH ADAPTER, TWO PUFFS INHALED EVERY 4 TO 6 HOURS AS REQUIRED
  9. ALBUTEROL NEBULIZER [Concomitant]
     Indication: WHEEZING
     Dosage: 90 MCG/INH AEROSOL WITH ADAPTER, TWO PUFFS INHALED EVERY 4 TO 6 HOURS AS REQUIRED
  10. ALBUTEROL NEBULIZER [Concomitant]
     Indication: ASTHMA
     Dosage: DAILY
  11. ALBUTEROL NEBULIZER [Concomitant]
     Indication: WHEEZING
     Dosage: DAILY
  12. VITAMIN D [Concomitant]
  13. OMEGA 3 [Concomitant]
  14. IBUPROFEN [Concomitant]
     Route: 065
  15. LIPITOR [Concomitant]

REACTIONS (36)
  - Intestinal perforation [Unknown]
  - Suicidal ideation [Unknown]
  - Hiatus hernia [Unknown]
  - Intestinal obstruction [Unknown]
  - Gastrooesophageal reflux disease [Unknown]
  - Adverse event [Unknown]
  - Hallucination, tactile [Unknown]
  - Cough [Unknown]
  - Throat irritation [Unknown]
  - Sneezing [Unknown]
  - Irritable bowel syndrome [Unknown]
  - Stress urinary incontinence [Unknown]
  - Pollakiuria [Unknown]
  - Night sweats [Unknown]
  - Hot flush [Unknown]
  - Diabetes mellitus [Unknown]
  - Asthma [Unknown]
  - Functional gastrointestinal disorder [Unknown]
  - Post-traumatic stress disorder [Unknown]
  - Essential hypertension [Unknown]
  - Dysphagia [Unknown]
  - Blood cholesterol increased [Unknown]
  - Weight increased [Unknown]
  - Hallucination, auditory [Unknown]
  - Depression [Unknown]
  - Insomnia [Unknown]
  - Dry mouth [Unknown]
  - Dyslipidaemia [Unknown]
  - Vitamin D deficiency [Unknown]
  - Schizoaffective disorder [Unknown]
  - Gastritis [Unknown]
  - Osteoarthritis [Unknown]
  - Osteoarthritis [Unknown]
  - Aggression [Unknown]
  - Intentional drug misuse [Unknown]
  - Drug dose omission [Unknown]
